FAERS Safety Report 7925099-7 (Version None)
Quarter: 2011Q4

REPORT INFORMATION
  Report Type: 
  Country: None (occurrence: None)
  Receive Date: 20111118
  Receipt Date: 20110401
  Transmission Date: 20120403
  Serious: No
  Sender: FDA-Public Use
  Company Number: US-AMGEN-USASP2011007910

PATIENT
  Age: 62 Year
  Sex: Female

DRUGS (3)
  1. ENBREL [Suspect]
     Indication: PROSTATIC SPECIFIC ANTIGEN
  2. ENBREL [Suspect]
     Indication: PSORIATIC ARTHROPATHY
     Dosage: 50 MG, QWK
     Dates: start: 20060401, end: 20110331
  3. ENBREL [Suspect]
     Indication: PSORIASIS
     Dates: start: 20110301, end: 20110301

REACTIONS (7)
  - PSORIATIC ARTHROPATHY [None]
  - OEDEMA PERIPHERAL [None]
  - STAPHYLOCOCCAL INFECTION [None]
  - DRUG INEFFECTIVE [None]
  - GAIT DISTURBANCE [None]
  - PSORIASIS [None]
  - RASH [None]
